FAERS Safety Report 9580541 (Version 1)
Quarter: 2013Q3

REPORT INFORMATION
  Report Type: Spontaneous
  Country: US (occurrence: None)
  Receive Date: 20130916
  Receipt Date: 20130916
  Transmission Date: 20140515
  Serious: Yes (Other)
  Sender: FDA-Public Use
  Company Number: JPI-P-032045

PATIENT
  Age: 30 Year
  Sex: Female
  Weight: 70 kg

DRUGS (4)
  1. XYREM [Suspect]
     Indication: CATAPLEXY
     Route: 048
     Dates: start: 20120712
  2. LITHIUM [Suspect]
     Indication: DEPRESSION
     Dates: start: 2013, end: 2013
  3. DEXTROAMPHETAMINE [Concomitant]
  4. BIRTH CONTROL [Concomitant]

REACTIONS (2)
  - Depression [None]
  - Headache [None]
